FAERS Safety Report 4795840-3 (Version None)
Quarter: 2005Q4

REPORT INFORMATION
  Report Type: 
  Country: None (occurrence: None)
  Receive Date: 20051007
  Receipt Date: 20050930
  Transmission Date: 20060501
  Serious: Yes (Death)
  Sender: FDA-Public Use
  Company Number: USA-2005-0021396

PATIENT
  Age: 42 Year
  Sex: Male
  Weight: 88.4 kg

DRUGS (2)
  1. OXYCODONE HCL [Suspect]
     Indication: DRUG USE FOR UNKNOWN INDICATION
     Dosage: MG
  2. OXYMORPHONE HYDROCHLORIDE [Suspect]
     Indication: DRUG USE FOR UNKNOWN INDICATION

REACTIONS (8)
  - ACCIDENTAL DEATH [None]
  - ACCIDENTAL OVERDOSE [None]
  - ARTERIOSCLEROSIS CORONARY ARTERY [None]
  - DRUG TOXICITY [None]
  - FIBROSIS [None]
  - PANCREATIC DISORDER [None]
  - PULMONARY GRANULOMA [None]
  - PULMONARY OEDEMA [None]
